FAERS Safety Report 5115288-1 (Version None)
Quarter: 2006Q3

REPORT INFORMATION
  Report Type: 
  Country: None (occurrence: None)
  Receive Date: 20060926
  Receipt Date: 20060919
  Transmission Date: 20061208
  Serious: Yes (Hospitalization)
  Sender: FDA-Public Use
  Company Number: IT-GLAXOSMITHKLINE-B0439486A

PATIENT
  Age: 55 Year
  Sex: Female

DRUGS (1)
  1. AUGMENTIN [Suspect]
     Indication: DRUG USE FOR UNKNOWN INDICATION
     Dosage: 2G PER DAY
     Route: 048
     Dates: start: 20060823, end: 20060828

REACTIONS (1)
  - VASCULAR PURPURA [None]
